FAERS Safety Report 8610855-2 (Version None)
Quarter: 2012Q3

REPORT INFORMATION
  Report Type: 
  Country: None (occurrence: None)
  Receive Date: 20120822
  Receipt Date: 20120810
  Transmission Date: 20120928
  Serious: Yes (Hospitalization)
  Sender: FDA-Public Use
  Company Number: US-ELI_LILLY_AND_COMPANY-US201208003743

PATIENT
  Sex: Female

DRUGS (14)
  1. FLUTICASONE PROPIONATE/SALMETEROL [Concomitant]
     Dosage: UNK, BID
  2. NITROGLYCERIN [Concomitant]
     Dosage: 6.5 MG, BID
  3. SPIRIVA [Concomitant]
     Dosage: 18 UG, BID
  4. MUCINEX [Concomitant]
     Dosage: 600 MG, BID
  5. LOSARTAN POTASSIUM [Concomitant]
     Dosage: 25 MG, QD
  6. CALCIUM [Concomitant]
     Dosage: 500 MG, BID
  7. VITAMIN D [Concomitant]
     Dosage: UNK, BID
  8. NORCO [Concomitant]
     Indication: PAIN
     Dosage: UNK, PRN
  9. XANAX [Concomitant]
     Dosage: UNK, EACH EVENING
  10. FORTEO [Suspect]
     Indication: OSTEOPOROSIS
     Dosage: 20 UG, QD
     Dates: start: 20120127
  11. FLONASE [Concomitant]
     Dosage: UNK, QD
  12. ZOLOFT [Concomitant]
     Dosage: 75 MG, QD
  13. LIDODERM [Concomitant]
     Dosage: UNK
  14. ALBUTEROL [Concomitant]
     Dosage: UNK, QID

REACTIONS (1)
  - HOSPITALISATION [None]
